FAERS Safety Report 6952551-3 (Version None)
Quarter: 2010Q3

REPORT INFORMATION
  Report Type: 
  Country: None (occurrence: None)
  Receive Date: 20100829
  Receipt Date: 20100504
  Transmission Date: 20110219
  Serious: No
  Sender: FDA-Public Use
  Company Number: US-ABBOTT-10P-163-0643200-00

PATIENT
  Sex: Male
  Weight: 104.42 kg

DRUGS (12)
  1. NIASPAN [Suspect]
     Indication: BLOOD CHOLESTEROL INCREASED
     Dates: start: 20100427
  2. COUMADIN [Concomitant]
     Indication: PRODUCT USED FOR UNKNOWN INDICATION
  3. MULTAQ [Concomitant]
     Indication: ARRHYTHMIA
  4. ZETIA [Concomitant]
     Indication: HEART VALVE INCOMPETENCE
  5. CRESTOR [Concomitant]
     Indication: HEART VALVE INCOMPETENCE
  6. LASIX [Concomitant]
     Indication: FLUID RETENTION
  7. METOPROLOL [Concomitant]
     Indication: HEART VALVE INCOMPETENCE
  8. AMLODIPINE [Concomitant]
     Indication: HEART VALVE INCOMPETENCE
  9. MICARDIS [Concomitant]
     Indication: HEART VALVE INCOMPETENCE
  10. DILTIAZEM [Concomitant]
     Indication: HEART VALVE INCOMPETENCE
  11. AMBIEN [Concomitant]
     Indication: INSOMNIA
  12. XANAX [Concomitant]
     Indication: INSOMNIA

REACTIONS (2)
  - FLUSHING [None]
  - PARAESTHESIA [None]
